FAERS Safety Report 4318877-7 (Version None)
Quarter: 2004Q1

REPORT INFORMATION
  Report Type: 
  Country: None (occurrence: None)
  Receive Date: 20040318
  Receipt Date: 20040310
  Transmission Date: 20041129
  Serious: Yes (Hospitalization)
  Sender: FDA-Public Use
  Company Number: JP-ROCHE-361342

PATIENT
  Age: 66 Year
  Sex: Male

DRUGS (10)
  1. PANALDINE [Suspect]
     Indication: ACUTE MYOCARDIAL INFARCTION
     Route: 048
     Dates: start: 20031029, end: 20031121
  2. LOCHOL [Suspect]
     Route: 048
     Dates: start: 20031029, end: 20031121
  3. DIOVAN [Suspect]
     Indication: HYPERTENSION
     Route: 048
     Dates: start: 20031029, end: 20031121
  4. PLETAL [Suspect]
     Indication: ACUTE MYOCARDIAL INFARCTION
     Route: 048
     Dates: start: 20031121, end: 20031223
  5. SIGMART [Concomitant]
     Indication: ACUTE MYOCARDIAL INFARCTION
     Route: 048
     Dates: start: 20031029
  6. MUCOSTA [Concomitant]
     Indication: GASTRITIS
     Route: 048
     Dates: start: 20031029
  7. BUFFERIN [Concomitant]
     Indication: ACUTE MYOCARDIAL INFARCTION
     Route: 048
     Dates: start: 20031029
  8. AMLODIN [Concomitant]
     Indication: HYPERTENSION
     Route: 048
     Dates: start: 20031029, end: 20031223
  9. CONIEL [Concomitant]
     Indication: HYPERTENSION
     Route: 048
     Dates: start: 20031223
  10. KERLONG [Concomitant]
     Indication: HYPERTENSION
     Route: 048
     Dates: start: 20031223

REACTIONS (12)
  - EOSINOPHIL COUNT INCREASED [None]
  - FAT EMBOLISM [None]
  - HAEMODIALYSIS [None]
  - HEPATIC ENZYME INCREASED [None]
  - INTESTINAL ULCER [None]
  - MALAISE [None]
  - MELAENA [None]
  - NAUSEA [None]
  - NEPHRITIS INTERSTITIAL [None]
  - RENAL FAILURE ACUTE [None]
  - RENAL TUBULAR NECROSIS [None]
  - VOMITING [None]
